FAERS Safety Report 7602577-1 (Version None)
Quarter: 2011Q2

REPORT INFORMATION
  Report Type: 
  Country: None (occurrence: None)
  Receive Date: 20110630
  Receipt Date: 20110620
  Transmission Date: 20111010
  Serious: Yes (Hospitalization)
  Sender: FDA-Public Use
  Company Number: DSA_46994_2011

PATIENT
  Age: 43 Year
  Sex: Female

DRUGS (9)
  1. BUPROPION HYDROCHLORIDE [Suspect]
     Indication: DEPRESSION
     Dosage: (100 MG BID ORAL)
     Route: 048
  2. LEVOTHYROXINE [Concomitant]
  3. FERROUS SULFATE TAB [Concomitant]
  4. DULOXETIME HYDROCHLORIDE [Concomitant]
  5. VITAMIN D [Concomitant]
  6. ARIPIPRAZOLE [Concomitant]
  7. VITAMINA C /00008001/ [Concomitant]
  8. GLUCOSAMINE [Concomitant]
  9. B12-VITAMIN [Concomitant]

REACTIONS (3)
  - BODY TEMPERATURE INCREASED [None]
  - WHITE BLOOD CELL COUNT INCREASED [None]
  - ACUTE GENERALISED EXANTHEMATOUS PUSTULOSIS [None]
